FAERS Safety Report 7060654-0 (Version None)
Quarter: 2010Q4

REPORT INFORMATION
  Report Type: 
  Country: None (occurrence: None)
  Receive Date: 20101025
  Receipt Date: 20101018
  Transmission Date: 20110411
  Serious: Yes (Disabling)
  Sender: FDA-Public Use
  Company Number: RU-ROCHE-733399

PATIENT
  Age: 30 Year
  Sex: Male

DRUGS (3)
  1. PEGASYS [Suspect]
     Route: 058
     Dates: start: 20091004, end: 20101011
  2. AMOXICILLIN AND CLAVULANATE POTASSIUM [Suspect]
     Dosage: FREQUENCY REPORTED AS ONCE.
     Route: 048
     Dates: start: 20101011, end: 20101011
  3. BICILLIN [Concomitant]
     Dosage: FREQUENCY ONCE. DRUG NAME REPORTED AS BICILLINUM.
     Dates: start: 20101005, end: 20101005

REACTIONS (5)
  - DIZZINESS [None]
  - LOSS OF CONSCIOUSNESS [None]
  - MONOPARESIS [None]
  - NAUSEA [None]
  - VOMITING [None]
